FAERS Safety Report 7353184-X (Version None)
Quarter: 2011Q1

REPORT INFORMATION
  Report Type: 
  Country: None (occurrence: None)
  Receive Date: 20110310
  Receipt Date: 20110310
  Transmission Date: 20110831
  Serious: Yes (Hospitalization)
  Sender: FDA-Public Use
  Company Number: None

PATIENT
  Age: 18 Year
  Sex: Female
  Weight: 43.0917 kg

DRUGS (1)
  1. ZOLPIDEM TARTRATE [Suspect]
     Indication: INSOMNIA
     Dosage: 10MG HS PO
     Route: 048
     Dates: start: 20110201, end: 20110308

REACTIONS (7)
  - OXYGEN SATURATION DECREASED [None]
  - INCORRECT DOSE ADMINISTERED [None]
  - TACHYCARDIA [None]
  - COMA [None]
  - BLOOD PRESSURE INCREASED [None]
  - VOMITING [None]
  - RESPIRATORY RATE INCREASED [None]
